FAERS Safety Report 6826683-4 (Version None)
Quarter: 2010Q3

REPORT INFORMATION
  Report Type: 
  Country: None (occurrence: None)
  Receive Date: 20100709
  Receipt Date: 20100630
  Transmission Date: 20110219
  Serious: Yes (Other)
  Sender: FDA-Public Use
  Company Number: BR-PFIZER INC-2010068047

PATIENT
  Sex: Female

DRUGS (2)
  1. ALDACTONE [Suspect]
     Indication: POLYCYSTIC OVARIES
     Dosage: 100 MG, 1X/DAY
     Route: 048
     Dates: end: 20100501
  2. ALDACTONE [Suspect]
     Indication: BLOOD PRESSURE ABNORMAL
     Dosage: 100 MG, 1X/DAY (TWO 50MG TABLETS ONCE DAILY)
     Route: 048
     Dates: start: 20100501

REACTIONS (2)
  - ARRHYTHMIA [None]
  - DRUG DISPENSING ERROR [None]
